FAERS Safety Report 19601966 (Version 1)
Quarter: 2021Q3

REPORT INFORMATION
  Report Type: Report from Study
  Country: AR (occurrence: AR)
  Receive Date: 20210723
  Receipt Date: 20210723
  Transmission Date: 20211014
  Serious: Yes (Other)
  Sender: FDA-Public Use
  Company Number: AR-BRISTOL-MYERS SQUIBB COMPANY-BMS-2021-070841

PATIENT
  Age: 34 Year
  Sex: Male

DRUGS (1)
  1. BELATACEPT [Suspect]
     Active Substance: BELATACEPT
     Indication: RENAL TRANSPLANT
     Dosage: 250 MILLIGRAM EVERY 15 DAYS
     Route: 042
     Dates: start: 202106

REACTIONS (3)
  - Drug ineffective [Unknown]
  - Off label use [Unknown]
  - Anuria [Unknown]
